FAERS Safety Report 6595610-X (Version None)
Quarter: 2010Q1

REPORT INFORMATION
  Report Type: 
  Country: None (occurrence: None)
  Receive Date: 20100222
  Receipt Date: 20100222
  Transmission Date: 20100710
  Serious: No
  Sender: FDA-Public Use
  Company Number: None

PATIENT
  Age: 60 Year
  Sex: Male
  Weight: 77.1115 kg

DRUGS (2)
  1. CIALIS [Suspect]
     Indication: ERECTILE DYSFUNCTION
     Dosage: 10 MG 1 TABLET PO
     Route: 048
     Dates: start: 20100129
  2. AUGMENTIN [Concomitant]

REACTIONS (3)
  - ERYTHEMA [None]
  - PENILE EXFOLIATION [None]
  - PENILE PAIN [None]
